FAERS Safety Report 6591339-2 (Version None)
Quarter: 2010Q1

REPORT INFORMATION
  Report Type: 
  Country: None (occurrence: None)
  Receive Date: 20100219
  Receipt Date: 20100215
  Transmission Date: 20100710
  Serious: Yes (Other)
  Sender: FDA-Public Use
  Company Number: FR-TEVA-224397ISR

PATIENT
  Age: 34 Year
  Sex: Male

DRUGS (4)
  1. CISPLATIN [Suspect]
     Indication: TESTIS CANCER
     Dosage: 3 CYCLES
  2. ETOPOSIDE [Suspect]
     Indication: TESTIS CANCER
     Dosage: 3 CYCLES
  3. PREDNISOLONE [Suspect]
  4. BLEOMYCIN [Suspect]
     Dosage: ON DAY 1, 8, 15

REACTIONS (1)
  - ARTERIAL THROMBOSIS [None]
